FAERS Safety Report 7589035-8 (Version None)
Quarter: 2011Q2

REPORT INFORMATION
  Report Type: 
  Country: None (occurrence: None)
  Receive Date: 20110603
  Receipt Date: 20101025
  Transmission Date: 20111010
  Serious: No
  Sender: FDA-Public Use
  Company Number: 2010SP056979

PATIENT
  Age: 64 Year
  Sex: Female

DRUGS (5)
  1. LEVOTHYROXINE SODIUM [Concomitant]
  2. LAMICTAL [Concomitant]
  3. SAPHRIS [Suspect]
     Indication: PRODUCT USED FOR UNKNOWN INDICATION
     Dosage: 5 MG;HS;SL
     Route: 060
  4. LITHIUM CARBONATE [Concomitant]
  5. ADVAIR DISKUS 100/50 [Concomitant]

REACTIONS (3)
  - APPLICATION SITE VESICLES [None]
  - INAPPROPRIATE SCHEDULE OF DRUG ADMINISTRATION [None]
  - UNDERDOSE [None]
